FAERS Safety Report 8883159 (Version 1)
Quarter: 2012Q4

REPORT INFORMATION
  Report Type: 
  Country: BR (occurrence: BR)
  Receive Date: 20121102
  Receipt Date: 20121102
  Transmission Date: 20130627
  Serious: Yes (Other)
  Sender: FDA-Public Use
  Company Number: PHHY2012BR074710

PATIENT
  Sex: Female

DRUGS (3)
  1. DIOVAN [Suspect]
     Indication: HYPERTENSION
     Dosage: 1 DF, daily
  2. ALDOMET [Suspect]
     Indication: HYPERTENSION
     Dosage: 2 DF, daily
  3. ALDOMET [Suspect]
     Dosage: 500 mg, Q8H

REACTIONS (5)
  - Gestational diabetes [Unknown]
  - Premature delivery [Unknown]
  - Malaise [Unknown]
  - Blood pressure inadequately controlled [Unknown]
  - Exposure during pregnancy [Unknown]
